FAERS Safety Report 17913475 (Version 2)
Quarter: 2020Q3

REPORT INFORMATION
  Report Type: Spontaneous
  Country: FR (occurrence: FR)
  Receive Date: 20200618
  Receipt Date: 20200703
  Transmission Date: 20201103
  Serious: Yes (Hospitalization)
  Sender: FDA-Public Use
  Company Number: FR-TEVA-2020-FR-1788364

PATIENT
  Age: 45 Year
  Sex: Female
  Weight: 57 kg

DRUGS (11)
  1. CYCLOPHOSPHAMIDE. [Suspect]
     Active Substance: CYCLOPHOSPHAMIDE
     Indication: BREAST CANCER
     Dosage: 3920 MG
     Route: 042
     Dates: start: 20200228, end: 20200409
  2. PACLITAXEL. [Concomitant]
     Active Substance: PACLITAXEL
     Indication: BREAST CANCER
     Dosage: 260 MG
     Route: 042
     Dates: start: 20200423, end: 20200430
  3. ONDANSETRON [Concomitant]
     Active Substance: ONDANSETRON
     Dosage: 8 MG BEFORE THE CHEMOTHERAPY TREATMENT
     Route: 042
     Dates: start: 20200228, end: 20200409
  4. APREPITANT. [Concomitant]
     Active Substance: APREPITANT
     Dosage: 125 MG ONE HOUR BEFORE CHEMOTHERAPY
     Dates: start: 20200228, end: 20200409
  5. PREDNISOLONE. [Concomitant]
     Active Substance: PREDNISOLONE
     Dosage: 4 TABLETS OF 20 MG IN THE MORNING FOR THE 3 DAYS AFTER THE CURE
     Route: 048
  6. METOPIMAZINE [Concomitant]
     Active Substance: METOPIMAZINE
     Dosage: 1 LYOPHILISATE 3 TO 4 TIMES A DAY SYSTEMATICALLY FOR 3 DAYS
  7. BEPANTHEN [Concomitant]
  8. METHYLPREDNISOLONE. [Concomitant]
     Active Substance: METHYLPREDNISOLONE
     Dosage: 80 MILLIGRAMS BEFORE THE CURE
     Route: 042
     Dates: start: 20200228
  9. DOXORUBICINE [Suspect]
     Active Substance: DOXORUBICIN
     Indication: BREAST CANCER
     Dosage: 391 MG
     Route: 042
     Dates: start: 20200228, end: 20200409
  10. AERIUS [Concomitant]
  11. TITANOREINE, CREME [Concomitant]

REACTIONS (2)
  - Pneumocystis jirovecii pneumonia [Not Recovered/Not Resolved]
  - Lymphopenia [Recovering/Resolving]

NARRATIVE: CASE EVENT DATE: 20200325
